FAERS Safety Report 8341845-5 (Version None)
Quarter: 2012Q2

REPORT INFORMATION
  Report Type: 
  Country: None (occurrence: None)
  Receive Date: 20120507
  Receipt Date: 20120426
  Transmission Date: 20120825
  Serious: Yes (Hospitalization)
  Sender: FDA-Public Use
  Company Number: US-ACTELION-A-NJ2011-54896

PATIENT

DRUGS (4)
  1. REVATIO [Concomitant]
  2. OXYGEN [Concomitant]
  3. TYVASO [Concomitant]
  4. TRACLEER [Suspect]
     Indication: PULMONARY ARTERIAL HYPERTENSION
     Dosage: UNK
     Route: 048
     Dates: start: 20061003

REACTIONS (5)
  - GASTROINTESTINAL DISORDER [None]
  - TRANSFUSION [None]
  - SWELLING [None]
  - GASTROINTESTINAL HAEMORRHAGE [None]
  - ANAEMIA [None]
